FAERS Safety Report 5871128-4 (Version None)
Quarter: 2008Q3

REPORT INFORMATION
  Report Type: 
  Country: None (occurrence: None)
  Receive Date: 20080904
  Receipt Date: 20080825
  Transmission Date: 20090109
  Serious: Yes (Death)
  Sender: FDA-Public Use
  Company Number: US-PFIZER INC-2008070928

PATIENT

DRUGS (3)
  1. NEURONTIN [Suspect]
  2. CELEBREX [Suspect]
  3. DETROL LA [Suspect]

REACTIONS (1)
  - DEATH [None]
